FAERS Safety Report 8200796 (Version 9)
Quarter: 2013Q1

REPORT INFORMATION
  Report Type: Spontaneous
  Country: US (occurrence: US)
  Receive Date: 20111026
  Receipt Date: 20130103
  Transmission Date: 20140127
  Serious: Yes (Hospitalization, Other)
  Sender: FDA-Public Use
  Company Number: US-009507513-1110USA03426

PATIENT
  Sex: 0

DRUGS (24)
  1. FOSAMAX [Suspect]
     Indication: OSTEOPENIA
     Dosage: 70 MG, QW
     Route: 048
     Dates: start: 20010129
  2. FOSAMAX [Suspect]
     Indication: OSTEOPOROSIS
     Dosage: 5 MG, QD
     Route: 048
     Dates: start: 19970923
  3. FOSAMAX [Suspect]
     Dosage: 70 MG, UNK
     Route: 048
     Dates: start: 20100118
  4. FOSAMAX PLUS D [Suspect]
     Indication: OSTEOPOROSIS
     Dosage: 70 MG, QW
     Route: 048
     Dates: start: 200504, end: 2010
  5. ONE-A-DAY ESSENTIAL VITAMINS [Concomitant]
     Dosage: UNK UNK, QD
     Dates: start: 1970
  6. CALCIUM (UNSPECIFIED) [Concomitant]
     Dosage: 500 MG, QD
     Dates: start: 1997
  7. SYNTHROID [Concomitant]
     Indication: THYROID DISORDER
     Dosage: 0.2 DF, QD
     Dates: start: 199701, end: 200407
  8. ATENOLOL [Concomitant]
     Indication: HYPERTENSION
     Dosage: 50 MG, QD
     Dates: start: 200407, end: 200608
  9. HYDROCHLOROTHIAZIDE [Concomitant]
     Indication: THYROID DISORDER
     Dosage: 25 MG, QD
     Dates: start: 20010815, end: 200611
  10. HYDROCHLOROTHIAZIDE [Concomitant]
     Indication: HYPERTENSION
  11. NIFEDIPINE [Concomitant]
     Indication: HYPERTENSION
     Dosage: 90 MG, QD
     Dates: start: 200410, end: 20080519
  12. QUINAPRIL HYDROCHLORIDE [Concomitant]
     Indication: HYPERTENSION
     Dosage: 40-80 MG QD
     Dates: start: 200502, end: 200806
  13. HORMONES (UNSPECIFIED) [Concomitant]
     Dosage: UNK
     Dates: start: 1997
  14. LASIX (FUROSEMIDE) [Concomitant]
     Dosage: 40 MG, QD
     Dates: end: 20101004
  15. NORVASC [Concomitant]
     Indication: HYPERTENSION
     Dosage: 5 - 10 MG QD
  16. ZAROXOLYN [Concomitant]
     Indication: HYPERTENSION
     Dosage: 5-10 MG QD
  17. ZAROXOLYN [Concomitant]
     Dosage: 5 MG 3X/WK
  18. ESTROTAB [Concomitant]
     Indication: OSTEOPOROSIS
     Dosage: 0.635 MG, QD
     Dates: start: 19990913
  19. ACCUPRIL [Concomitant]
     Dosage: UNK
     Dates: start: 19961202
  20. COVERA-HS [Concomitant]
     Indication: HYPERTENSION
     Dosage: 240 MG, UNK
     Dates: start: 19971009
  21. NORMODYNE [Concomitant]
     Dosage: 200 MG, TID
     Dates: start: 19970923
  22. MOTRIN [Concomitant]
     Dosage: UNK
     Dates: start: 19970923
  23. CARDIZEM CD [Concomitant]
     Dosage: 240 MG, QD
     Dates: start: 19971021
  24. INFLUENZA VIRUS VACCINE (UNSPECIFIED) [Concomitant]
     Dosage: UNK
     Dates: start: 19971009

REACTIONS (69)
  - Femur fracture [Recovered/Resolved]
  - Closed fracture manipulation [Unknown]
  - Renal failure acute [Unknown]
  - Hypokalaemia [Unknown]
  - Hyponatraemia [Unknown]
  - Anaemia postoperative [Unknown]
  - Hysterectomy [Unknown]
  - Hypotension [Unknown]
  - Renal failure chronic [Not Recovered/Not Resolved]
  - Cellulitis [Recovered/Resolved]
  - Phlebitis [Unknown]
  - Spinal osteoarthritis [Unknown]
  - Fracture nonunion [Recovered/Resolved]
  - Nocturia [Unknown]
  - Rotator cuff syndrome [Unknown]
  - Osteoarthritis [Unknown]
  - Nephrosclerosis [Unknown]
  - Dermatitis allergic [Unknown]
  - Blood potassium decreased [Unknown]
  - Skin haemorrhage [Unknown]
  - Proteinuria [Unknown]
  - Diverticulum [Unknown]
  - Renal cyst [Unknown]
  - Arteriosclerosis [Unknown]
  - Umbilical hernia [Unknown]
  - Fall [Unknown]
  - Nocturia [Unknown]
  - Varicose vein [Unknown]
  - Phlebitis superficial [Unknown]
  - Acute sinusitis [Unknown]
  - Laryngitis [Unknown]
  - Back injury [Unknown]
  - Ligament sprain [Unknown]
  - Back injury [Unknown]
  - Groin pain [Unknown]
  - Anal pruritus [Unknown]
  - Gait disturbance [Unknown]
  - Fall [Unknown]
  - Chest injury [Unknown]
  - Gait disturbance [Unknown]
  - Pharyngeal erythema [Unknown]
  - Back injury [Unknown]
  - Hypertension [Unknown]
  - Respiratory tract congestion [Unknown]
  - Pyrexia [Unknown]
  - Spinal column stenosis [Unknown]
  - Limb asymmetry [Unknown]
  - Oropharyngeal pain [Unknown]
  - Cough [Unknown]
  - Ecchymosis [Unknown]
  - Ecchymosis [Unknown]
  - Dry mouth [Unknown]
  - Fall [Recovered/Resolved]
  - Diabetes mellitus [Unknown]
  - Sinus bradycardia [Unknown]
  - Atrioventricular block first degree [Unknown]
  - Vertebral foraminal stenosis [Unknown]
  - Dizziness [Unknown]
  - Back pain [Unknown]
  - Local swelling [Recovered/Resolved]
  - Diarrhoea [Unknown]
  - Local swelling [Unknown]
  - Arthralgia [Unknown]
  - Rash [Unknown]
  - Headache [Unknown]
  - Rash [Unknown]
  - Back pain [Unknown]
  - Tenolysis [Unknown]
  - Fractured sacrum [Unknown]
